FAERS Safety Report 10162765 (Version 1)
Quarter: 2014Q2

REPORT INFORMATION
  Report Type: Spontaneous
  Country: US (occurrence: US)
  Receive Date: 20140509
  Receipt Date: 20140509
  Transmission Date: 20141212
  Serious: No
  Sender: FDA-Public Use
  Company Number: US-TEVA-480264USA

PATIENT
  Sex: 0

DRUGS (2)
  1. COPAXONE 40MG [Suspect]
     Indication: MULTIPLE SCLEROSIS
  2. COPAXONE 40MG [Suspect]

REACTIONS (2)
  - Injection site reaction [Unknown]
  - Skin reaction [Unknown]
